FAERS Safety Report 8243370-9 (Version None)
Quarter: 2012Q1

REPORT INFORMATION
  Report Type: 
  Country: None (occurrence: None)
  Receive Date: 20120329
  Receipt Date: 20120312
  Transmission Date: 20120608
  Serious: Yes (Other)
  Sender: FDA-Public Use
  Company Number: US-ROCHE-1048630

PATIENT
  Sex: Male

DRUGS (2)
  1. ZELBORAF [Suspect]
     Dates: start: 20120123
  2. ZELBORAF [Suspect]
     Indication: METASTATIC MALIGNANT MELANOMA
     Route: 048
     Dates: start: 20111217, end: 20120122

REACTIONS (4)
  - MASS [None]
  - MALIGNANT MELANOMA [None]
  - TONGUE BLISTERING [None]
  - DECREASED APPETITE [None]
